FAERS Safety Report 9401016 (Version 3)
Quarter: 2013Q3

REPORT INFORMATION
  Report Type: Spontaneous
  Country: JP (occurrence: JP)
  Receive Date: 20130715
  Receipt Date: 20130913
  Transmission Date: 20140515
  Serious: Yes (Hospitalization)
  Sender: FDA-Public Use
  Company Number: JP-GLAXOSMITHKLINE-B0906527A

PATIENT
  Age: 89 Year
  Sex: Male

DRUGS (3)
  1. ARIXTRA [Suspect]
     Indication: THROMBOSIS PROPHYLAXIS
     Dosage: 1.5MG PER DAY
     Route: 058
     Dates: start: 20130627, end: 20130703
  2. HEPARIN-LOCK [Concomitant]
     Dosage: 10IU THREE TIMES PER DAY
     Dates: start: 20130626, end: 20130627
  3. CEFAMEZIN [Concomitant]
     Indication: INFECTION PROPHYLAXIS
     Dosage: 1G THREE TIMES PER DAY
     Dates: start: 20130625, end: 20130627

REACTIONS (3)
  - Disseminated intravascular coagulation [Recovered/Resolved]
  - Heparin-induced thrombocytopenia [Recovered/Resolved]
  - Platelet count decreased [Recovered/Resolved]
